FAERS Safety Report 5726057-3 (Version None)
Quarter: 2008Q2

REPORT INFORMATION
  Report Type: 
  Country: None (occurrence: None)
  Receive Date: 20080501
  Receipt Date: 20080501
  Transmission Date: 20081010
  Serious: Yes (Death)
  Sender: FDA-Public Use
  Company Number: None

PATIENT
  Sex: Female
  Weight: 65.7716 kg

DRUGS (7)
  1. TREPROSTINIL 2.5MG/ML UNITED THERAPEUTICS [Suspect]
     Indication: PULMONARY HYPERTENSION
     Dosage: 13NG/KG/MIN CONTINUOUS IV DRIP
     Route: 041
     Dates: start: 20080322, end: 20080422
  2. SPIRONOLACTONE [Concomitant]
  3. OXYCODONE HCL [Concomitant]
  4. ESTRADIOL [Concomitant]
  5. SILDENAFIL CITRATE [Concomitant]
  6. WARFARIN SODIUM [Concomitant]
  7. BOSENTAN [Concomitant]

REACTIONS (2)
  - BACTERIAL SEPSIS [None]
  - INFUSION RELATED REACTION [None]
